FAERS Safety Report 25267533 (Version 2)
Quarter: 2025Q2

REPORT INFORMATION
  Report Type: Spontaneous
  Country: US (occurrence: US)
  Receive Date: 20250505
  Receipt Date: 20250513
  Transmission Date: 20250716
  Serious: Yes (Life-Threatening, Hospitalization)
  Sender: DR REDDYS
  Company Number: None

PATIENT
  Age: 75 Year
  Sex: Male

DRUGS (1)
  1. CARBIDOPA\LEVODOPA [Suspect]
     Active Substance: CARBIDOPA\LEVODOPA
     Indication: Parkinson^s disease
     Dosage: 25 MG/100 MG,

REACTIONS (7)
  - Withdrawal syndrome [Unknown]
  - Acute kidney injury [Unknown]
  - Parkinsonism hyperpyrexia syndrome [Recovering/Resolving]
  - Rhabdomyolysis [Recovering/Resolving]
  - Acidosis [Unknown]
  - Hypervolaemia [Unknown]
  - Product dose omission issue [Unknown]
